FAERS Safety Report 6098272-3 (Version None)
Quarter: 2009Q1

REPORT INFORMATION
  Report Type: 
  Country: None (occurrence: None)
  Receive Date: 20090227
  Receipt Date: 20090217
  Transmission Date: 20090719
  Serious: Yes (Hospitalization)
  Sender: FDA-Public Use
  Company Number: FR-ABBOTT-09P-056-0557676-00

PATIENT
  Sex: Male

DRUGS (14)
  1. KALETRA [Suspect]
     Indication: HIV INFECTION
     Dates: start: 20081220
  2. PREDNISONE [Suspect]
     Indication: THROMBOTIC MICROANGIOPATHY
     Route: 048
     Dates: start: 20081226, end: 20090120
  3. PREDNISONE [Suspect]
     Dates: start: 20090120
  4. LAMIVUDINE [Suspect]
     Indication: HIV INFECTION
     Route: 048
     Dates: start: 20081220
  5. ABACAVIR [Suspect]
     Indication: HIV INFECTION
     Route: 048
     Dates: start: 20081220
  6. HYDROCHLOROTHIAZIDE [Suspect]
     Indication: HYPERTENSION
     Route: 048
  7. FUROSEMID [Suspect]
     Indication: HYPERTENSION
     Route: 048
     Dates: start: 20090119
  8. ATENOLOL [Concomitant]
     Indication: HYPERTENSION
  9. URAPIDIL [Concomitant]
     Indication: HYPERTENSION
  10. AMLODIPINE [Concomitant]
     Indication: HYPERTENSION
  11. PERINDOPRIL ERBUMINE [Concomitant]
     Indication: HYPERTENSION
  12. METRONIDAZOLE HCL [Concomitant]
     Indication: DRUG USE FOR UNKNOWN INDICATION
  13. PANTOPRAZOLE [Concomitant]
     Indication: DRUG USE FOR UNKNOWN INDICATION
  14. RILMENIDINE [Concomitant]
     Indication: HYPERTENSION
     Dates: start: 20090119

REACTIONS (3)
  - DIABETES MELLITUS [None]
  - HYPONATRAEMIA [None]
  - THROMBOTIC MICROANGIOPATHY [None]
